FAERS Safety Report 8293732-9 (Version None)
Quarter: 2012Q2

REPORT INFORMATION
  Report Type: 
  Country: None (occurrence: None)
  Receive Date: 20120413
  Receipt Date: 20120409
  Transmission Date: 20120825
  Serious: Yes (Hospitalization)
  Sender: FDA-Public Use
  Company Number: 2011SP056194

PATIENT
  Age: 24 Year
  Sex: Female
  Weight: 81.6475 kg

DRUGS (2)
  1. NUVARING [Suspect]
     Indication: MENSTRUAL DISORDER
     Dates: start: 20090601
  2. NUVARING [Suspect]
     Indication: MENSTRUAL DISORDER
     Dates: start: 20070101, end: 20091231

REACTIONS (6)
  - DYSLIPIDAEMIA [None]
  - PNEUMONIA [None]
  - MIGRAINE [None]
  - HYPERCOAGULATION [None]
  - DEEP VEIN THROMBOSIS [None]
  - PULMONARY EMBOLISM [None]
